FAERS Safety Report 4725789-3 (Version None)
Quarter: 2005Q3

REPORT INFORMATION
  Report Type: 
  Country: None (occurrence: None)
  Receive Date: 20050722
  Receipt Date: 20050722
  Transmission Date: 20060218
  Serious: Yes (Hospitalization)
  Sender: FDA-Public Use
  Company Number: None

PATIENT
  Age: 57 Year
  Sex: Female

DRUGS (1)
  1. PREDNISONE [Suspect]
     Indication: RENAL TRANSPLANT
     Dosage: 10 MG DAILY ORAL
     Route: 048

REACTIONS (1)
  - HYPERGLYCAEMIA [None]
